FAERS Safety Report 15839057 (Version 6)
Quarter: 2022Q2

REPORT INFORMATION
  Report Type: Report from Study
  Country: US (occurrence: US)
  Receive Date: 20190117
  Receipt Date: 20220608
  Transmission Date: 20220721
  Serious: Yes (Death, Hospitalization, Disabling, Other)
  Sender: FDA-Public Use
  Company Number: US-GILEAD-2018-0380905

PATIENT
  Age: 39 Year
  Sex: Male
  Weight: 95.4 kg

DRUGS (27)
  1. AXICABTAGENE CILOLEUCEL [Suspect]
     Active Substance: AXICABTAGENE CILOLEUCEL
     Indication: Follicular lymphoma
     Dosage: 68 ML, ONCE
     Route: 042
     Dates: start: 20181210, end: 20181210
  2. CYCLOPHOSPHAMIDE [Suspect]
     Active Substance: CYCLOPHOSPHAMIDE
     Indication: Bone marrow conditioning regimen
     Dosage: 500 MG/M2, QD
     Route: 042
     Dates: start: 20181205, end: 20181207
  3. FLUDARABINE [Suspect]
     Active Substance: FLUDARABINE PHOSPHATE
     Indication: Bone marrow conditioning regimen
     Dosage: 30 MG/M2, QD
     Route: 042
     Dates: start: 20181205, end: 20181207
  4. MESNA [Suspect]
     Active Substance: MESNA
     Indication: Bone marrow conditioning regimen
     Dosage: 500
     Route: 042
     Dates: start: 20181205, end: 20181205
  5. ALLOPURINOL [Concomitant]
     Active Substance: ALLOPURINOL
  6. DEXAMETHASONE [Concomitant]
     Active Substance: DEXAMETHASONE
  7. ZOFRAN [Concomitant]
     Active Substance: ONDANSETRON HYDROCHLORIDE
     Dosage: UNK
     Dates: start: 20181206, end: 20181217
  8. ZARXIO [Concomitant]
     Active Substance: FILGRASTIM-SNDZ
  9. COMPAZINE [Concomitant]
     Active Substance: PROCHLORPERAZINE MALEATE
     Dosage: UNK
     Dates: start: 20181209, end: 20181209
  10. PANTOPRAZOLE [Concomitant]
     Active Substance: PANTOPRAZOLE
     Dosage: 40,MG,DAILY
     Route: 048
     Dates: start: 20181210, end: 20181213
  11. KYTRIL [Concomitant]
     Active Substance: GRANISETRON HYDROCHLORIDE
  12. OXYCODONE [Concomitant]
     Active Substance: OXYCODONE
     Dosage: 15,MG,AS NECESSARY
     Route: 048
     Dates: start: 20181213, end: 20181214
  13. OXYCODONE [Concomitant]
     Active Substance: OXYCODONE
     Dosage: 10,MG,AS NECESSARY
     Route: 048
     Dates: start: 20181210, end: 20181213
  14. OXYCODONE [Concomitant]
     Active Substance: OXYCODONE
     Dosage: 15,MG,AS NECESSARY
     Route: 048
     Dates: start: 20181216, end: 20181217
  15. MELATONIN [Concomitant]
     Active Substance: MELATONIN
     Dosage: 5,MG,DAILY
     Route: 048
     Dates: start: 20181211, end: 20181215
  16. METHOCARBAMOL [Concomitant]
     Active Substance: METHOCARBAMOL
     Dosage: 500,MG,THREE TIMES DAILY
     Route: 048
     Dates: start: 20181212, end: 20181216
  17. DIPHENHYDRAMINE [Concomitant]
     Active Substance: DIPHENHYDRAMINE
     Dosage: 50,MG,AS NECESSARY
     Route: 048
     Dates: start: 20181210, end: 20181210
  18. DIPHENHYDRAMINE [Concomitant]
     Active Substance: DIPHENHYDRAMINE
     Dosage: 50,MG,FOUR TIMES DAILY
     Route: 048
     Dates: start: 20181216, end: 20181216
  19. DOCUSATE [Concomitant]
     Active Substance: DOCUSATE
     Dosage: 100,MG,TWICE DAILY
     Route: 048
     Dates: start: 20181211, end: 20181216
  20. POLYETHYLENE GLYCOL [Concomitant]
     Active Substance: POLYETHYLENE GLYCOL
     Dosage: 17,G,DAILY
     Route: 048
     Dates: start: 20181211, end: 20181216
  21. LIDOCAINE [Concomitant]
     Active Substance: LIDOCAINE
     Dosage: 5,%,DAILY
     Route: 050
     Dates: start: 20181216, end: 20181217
  22. MENTHOL [Concomitant]
     Active Substance: MENTHOL
  23. SODIUM CHLORIDE [Concomitant]
     Active Substance: SODIUM CHLORIDE
     Dosage: 1 L
     Route: 042
     Dates: start: 20181213, end: 20181214
  24. SODIUM CHLORIDE [Concomitant]
     Active Substance: SODIUM CHLORIDE
     Dosage: UNK, PRN
     Route: 042
  25. SODIUM CHLORIDE [Concomitant]
     Active Substance: SODIUM CHLORIDE
     Dosage: UNK
     Dates: start: 20181210, end: 20181214
  26. PROCHLORPERAZINE [Concomitant]
     Active Substance: PROCHLORPERAZINE
     Dosage: 5,MG,AS NECESSARY
     Route: 041
     Dates: start: 20181209, end: 20181209
  27. SEVELAMER [Concomitant]
     Active Substance: SEVELAMER

REACTIONS (6)
  - Cytokine release syndrome [Fatal]
  - Multiple organ dysfunction syndrome [Fatal]
  - Sinus tachycardia [Recovered/Resolved]
  - Pyrexia [Not Recovered/Not Resolved]
  - Hypoxia [Not Recovered/Not Resolved]
  - Hypotension [Not Recovered/Not Resolved]

NARRATIVE: CASE EVENT DATE: 20181214
